FAERS Safety Report 4539040-0 (Version None)
Quarter: 2004Q4

REPORT INFORMATION
  Report Type: 
  Country: None (occurrence: None)
  Receive Date: 20041222
  Receipt Date: 20041129
  Transmission Date: 20050328
  Serious: Yes (Hospitalization)
  Sender: FDA-Public Use
  Company Number: 2004BI000545

PATIENT
  Age: 18 Year
  Sex: Female
  Weight: 83.9154 kg

DRUGS (10)
  1. AVONEX [Suspect]
     Indication: MULTIPLE SCLEROSIS
     Dosage: 30  UG; QW; IM
     Route: 030
     Dates: start: 20040201, end: 20040201
  2. AVONEX [Suspect]
     Indication: MULTIPLE SCLEROSIS
     Dosage: 30  UG; QW; IM
     Route: 030
     Dates: start: 20041001, end: 20041118
  3. NEURONTIN [Concomitant]
  4. CYTOXAN [Concomitant]
  5. RITUXAN [Concomitant]
  6. DEPAKOTE [Concomitant]
  7. TOPAMAX [Concomitant]
  8. DILAUDID [Concomitant]
  9. AVINZA [Concomitant]
  10. PROZAC [Concomitant]

REACTIONS (7)
  - ABASIA [None]
  - CONDITION AGGRAVATED [None]
  - FALL [None]
  - MULTIPLE SCLEROSIS [None]
  - VISION BLURRED [None]
  - VISUAL DISTURBANCE [None]
  - VISUAL EVOKED POTENTIALS ABNORMAL [None]
